FAERS Safety Report 13461599 (Version 7)
Quarter: 2018Q1

REPORT INFORMATION
  Report Type: Spontaneous
  Country: JP (occurrence: JP)
  Receive Date: 20170420
  Receipt Date: 20180306
  Transmission Date: 20180508
  Serious: Yes (Hospitalization, Other)
  Sender: FDA-Public Use
  Company Number: JP-JNJFOC-20170416577

PATIENT
  Age: 33 Year
  Sex: Female

DRUGS (24)
  1. RISPERDAL [Suspect]
     Active Substance: RISPERIDONE
     Indication: SCHIZOPHRENIA
     Route: 048
  2. RISPERDAL [Suspect]
     Active Substance: RISPERIDONE
     Indication: SCHIZOPHRENIA
     Dosage: 1.125MG MORNING,0.75MG EVENING
     Route: 048
  3. RISPERDAL [Suspect]
     Active Substance: RISPERIDONE
     Indication: SCHIZOPHRENIA
     Dosage: TAPERED BY 0.5 MG PER WEEK
     Route: 048
  4. RISPERDAL [Suspect]
     Active Substance: RISPERIDONE
     Indication: SCHIZOPHRENIA
     Route: 048
     Dates: start: 20170411
  5. RISPERDAL [Suspect]
     Active Substance: RISPERIDONE
     Indication: SCHIZOPHRENIA
     Dosage: DOSE DECREASE BY 0.3 MG PER DAY
     Route: 048
     Dates: start: 2017
  6. RISPERDAL [Suspect]
     Active Substance: RISPERIDONE
     Indication: SCHIZOPHRENIA
     Dosage: 0.75MG MORNING,1MG EVENING
     Route: 048
     Dates: start: 20170128
  7. RISPERDAL [Suspect]
     Active Substance: RISPERIDONE
     Indication: SCHIZOPHRENIA
     Route: 048
     Dates: start: 20170321, end: 20170330
  8. RISPERDAL [Suspect]
     Active Substance: RISPERIDONE
     Indication: SCHIZOPHRENIA
     Route: 048
     Dates: start: 20170331
  9. RISPERDAL [Suspect]
     Active Substance: RISPERIDONE
     Indication: SCHIZOPHRENIA
     Route: 048
     Dates: end: 2017
  10. RISPERDAL [Suspect]
     Active Substance: RISPERIDONE
     Indication: SCHIZOPHRENIA
     Dosage: 1 MG IN THE MORNING AND 1 MG IN THE EVENING
     Route: 048
     Dates: start: 20180119
  11. WYPAX [Suspect]
     Active Substance: LORAZEPAM
     Indication: PRODUCT USED FOR UNKNOWN INDICATION
     Route: 048
     Dates: start: 20170128, end: 20170321
  12. RISPERDAL [Suspect]
     Active Substance: RISPERIDONE
     Indication: SCHIZOPHRENIA
     Route: 048
     Dates: start: 2010
  13. TASMOLIN [Concomitant]
     Active Substance: BIPERIDEN
     Route: 065
  14. RISPERDAL [Suspect]
     Active Substance: RISPERIDONE
     Indication: SCHIZOPHRENIA
     Route: 048
  15. RISPERDAL [Suspect]
     Active Substance: RISPERIDONE
     Indication: SCHIZOPHRENIA
     Route: 048
     Dates: start: 2014
  16. RISPERDAL [Suspect]
     Active Substance: RISPERIDONE
     Indication: SCHIZOPHRENIA
     Dosage: DOSE WHICH WAS BEING REDUCED BY 0.5 MG PER WEEK
     Route: 048
     Dates: start: 2015
  17. RISPERDAL [Suspect]
     Active Substance: RISPERIDONE
     Indication: SCHIZOPHRENIA
     Dosage: APPROXIMATELY 1.85 MG
     Route: 048
     Dates: start: 2017, end: 2017
  18. RISPERDAL [Suspect]
     Active Substance: RISPERIDONE
     Indication: SCHIZOPHRENIA
     Route: 048
     Dates: start: 20180226, end: 20180227
  19. SEROQUEL [Concomitant]
     Active Substance: QUETIAPINE FUMARATE
     Route: 048
     Dates: start: 20170325, end: 20170331
  20. HALOPERIDOL. [Concomitant]
     Active Substance: HALOPERIDOL
     Route: 065
  21. RISPERDAL [Suspect]
     Active Substance: RISPERIDONE
     Indication: SCHIZOPHRENIA
     Route: 048
  22. LONASEN [Suspect]
     Active Substance: BLONANSERIN
     Indication: PRODUCT USED FOR UNKNOWN INDICATION
     Route: 048
     Dates: end: 20170321
  23. SEROQUEL [Concomitant]
     Active Substance: QUETIAPINE FUMARATE
     Route: 048
     Dates: start: 20170321, end: 20170323
  24. SEROQUEL [Concomitant]
     Active Substance: QUETIAPINE FUMARATE
     Route: 048
     Dates: start: 20170324, end: 20170324

REACTIONS (17)
  - Akathisia [Unknown]
  - Extrapyramidal disorder [Unknown]
  - Decreased appetite [Not Recovered/Not Resolved]
  - Feeling abnormal [Unknown]
  - Catatonia [Not Recovered/Not Resolved]
  - Drug dose omission [Unknown]
  - Treatment noncompliance [Unknown]
  - Oculogyric crisis [Unknown]
  - Affect lability [Unknown]
  - Screaming [Unknown]
  - Insomnia [Unknown]
  - Hospitalisation [Unknown]
  - Withdrawal syndrome [Recovered/Resolved]
  - Psychiatric symptom [Unknown]
  - Agitation [Unknown]
  - Wrong technique in product usage process [Unknown]
  - Restlessness [Unknown]

NARRATIVE: CASE EVENT DATE: 2013
